FAERS Safety Report 5579780-8 (Version None)
Quarter: 2008Q1

REPORT INFORMATION
  Report Type: 
  Country: None (occurrence: None)
  Receive Date: 20080102
  Receipt Date: 20071221
  Transmission Date: 20080703
  Serious: Yes (Hospitalization)
  Sender: FDA-Public Use
  Company Number: US-PFIZER INC-2007107040

PATIENT
  Age: 54 Year
  Sex: Male
  Weight: 106.14 kg

DRUGS (1)
  1. SUTENT [Suspect]
     Indication: METASTATIC MALIGNANT MELANOMA
     Route: 048
     Dates: start: 20071029, end: 20071216

REACTIONS (1)
  - CONVULSION [None]
